FAERS Safety Report 8066793-X (Version None)
Quarter: 2012Q1

REPORT INFORMATION
  Report Type: 
  Country: None (occurrence: None)
  Receive Date: 20120124
  Receipt Date: 20120111
  Transmission Date: 20120608
  Serious: Yes (Other)
  Sender: FDA-Public Use
  Company Number: US-CELGENEUS-163-21880-11063625

PATIENT
  Sex: Male
  Weight: 82.1 kg

DRUGS (14)
  1. PLAVIX [Concomitant]
  2. REVLIMID [Suspect]
     Indication: MULTIPLE MYELOMA
     Dosage: 10 MILLIGRAM
     Route: 048
     Dates: start: 20070101, end: 20070401
  3. ASPIRIN [Concomitant]
     Route: 065
     Dates: start: 20080901, end: 20110601
  4. RED BLOOD CELLS [Concomitant]
     Dosage: 2 UNITS
     Route: 041
     Dates: start: 20110926, end: 20110926
  5. NEURONTIN [Concomitant]
     Route: 065
     Dates: start: 20101221
  6. DEXAMETHASONE [Suspect]
     Dosage: 20 MILLIGRAM
     Route: 065
     Dates: start: 20090701, end: 20100701
  7. CELEXA [Concomitant]
     Route: 065
     Dates: start: 20101221
  8. PLATELETS [Concomitant]
     Route: 041
  9. PLATELETS [Concomitant]
     Route: 041
     Dates: start: 20111003, end: 20111003
  10. RED BLOOD CELLS [Concomitant]
     Dosage: 1 UNIT
     Route: 041
     Dates: start: 20110825
  11. REVLIMID [Suspect]
     Dosage: 10 MILLIGRAM
     Route: 048
     Dates: start: 20080901, end: 20110623
  12. RED BLOOD CELLS [Concomitant]
     Route: 041
     Dates: start: 20110721
  13. RED BLOOD CELLS [Concomitant]
     Route: 041
     Dates: start: 20110815
  14. DEXAMETHASONE [Suspect]
     Indication: MULTIPLE MYELOMA
     Dosage: 40 MILLIGRAM
     Route: 065
     Dates: start: 20080901

REACTIONS (2)
  - MYELODYSPLASTIC SYNDROME [None]
  - PANCYTOPENIA [None]
